FAERS Safety Report 17178204 (Version 1)
Quarter: 2019Q4

REPORT INFORMATION
  Report Type: Spontaneous
  Country: CN (occurrence: CN)
  Receive Date: 20191219
  Receipt Date: 20191219
  Transmission Date: 20200122
  Serious: Yes (Death, Other)
  Sender: FDA-Public Use
  Company Number: CN-ALKEM LABORATORIES LIMITED-CN-ALKEM-2019-08294

PATIENT
  Age: 21 Year
  Sex: Male

DRUGS (4)
  1. CAPECITABINE. [Suspect]
     Active Substance: CAPECITABINE
     Indication: CHEMOTHERAPY
     Dosage: 1000 MILLIGRAM/SQ. METER, BID REPEATED EVERY 3 WEEKS
     Route: 048
     Dates: start: 20161118
  2. OXALIPLATIN. [Suspect]
     Active Substance: OXALIPLATIN
     Indication: CHEMOTHERAPY
     Dosage: 130 MILLIGRAM/SQ. METER ON DAY 1
     Route: 042
     Dates: start: 20161118
  3. IRINOTECAN [Suspect]
     Active Substance: IRINOTECAN
     Indication: CHEMOTHERAPY
     Dosage: 180 MILLIGRAM/SQ. METER OVER 30-90 MIN ON DAY 1
     Route: 042
  4. CETUXIMAB. [Suspect]
     Active Substance: CETUXIMAB
     Indication: CHEMOTHERAPY
     Dosage: 500 MILLIGRAM/SQ. METER 2 H ON DAY 1 EVERY 2 WEEKS
     Route: 042
     Dates: start: 20161118

REACTIONS (1)
  - Disease progression [Fatal]
